FAERS Safety Report 9753273 (Version 2)
Quarter: 2014Q1

REPORT INFORMATION
  Report Type: Spontaneous
  Country: US (occurrence: US)
  Receive Date: 20131213
  Receipt Date: 20140203
  Transmission Date: 20141002
  Serious: No
  Sender: FDA-Public Use
  Company Number: US-TEVA-450390USA

PATIENT
  Sex: Female

DRUGS (5)
  1. CLARAVIS [Suspect]
     Route: 048
  2. DAPSONE [Concomitant]
     Dosage: ACZONE 5%
     Route: 061
  3. DROSPIRENONE W/ETHINYLESTRADIOL [Concomitant]
     Dosage: BEYAZ
     Route: 048
  4. MINOCYCLINE HYDROCHLORIDE [Concomitant]
     Route: 048
  5. TRIAMCINOLONE [Concomitant]
     Dosage: LIP BALM

REACTIONS (1)
  - Petechiae [Not Recovered/Not Resolved]
